FAERS Safety Report 17278258 (Version 1)
Quarter: 2020Q1

REPORT INFORMATION
  Report Type: Report from Study
  Country: ES (occurrence: ES)
  Receive Date: 20200116
  Receipt Date: 20200116
  Transmission Date: 20200409
  Serious: Yes (Hospitalization)
  Sender: FDA-Public Use
  Company Number: ES-ZYDUS-046495

PATIENT
  Age: 64 Year
  Sex: Female

DRUGS (4)
  1. OLANZAPINE. [Suspect]
     Active Substance: OLANZAPINE
     Indication: INTENTIONAL OVERDOSE
     Route: 048
     Dates: start: 20190726, end: 20190728
  2. LEVOTHYROXINE. [Concomitant]
     Active Substance: LEVOTHYROXINE
     Indication: HYPOTHYROIDISM
     Dates: start: 201409
  3. LITHIUM. [Interacting]
     Active Substance: LITHIUM
     Indication: INTENTIONAL OVERDOSE
     Dosage: IN TOTAL
     Route: 048
     Dates: start: 20190726, end: 20190728
  4. LORMETAZEPAM [Interacting]
     Active Substance: LORMETAZEPAM
     Indication: INTENTIONAL OVERDOSE
     Route: 048
     Dates: start: 20190726, end: 20190728

REACTIONS (2)
  - Confusional state [Recovered/Resolved]
  - Antipsychotic drug level above therapeutic [Recovered/Resolved]

NARRATIVE: CASE EVENT DATE: 20190728
